FAERS Safety Report 4312167-4 (Version None)
Quarter: 2004Q1

REPORT INFORMATION
  Report Type: 
  Country: None (occurrence: None)
  Receive Date: 20040302
  Receipt Date: 20031110
  Transmission Date: 20041129
  Serious: No
  Sender: FDA-Public Use
  Company Number: 200328287BWH

PATIENT
  Age: 81 Year
  Sex: Male

DRUGS (9)
  1. LEVITRA [Suspect]
     Indication: ERECTILE DYSFUNCTION
     Dosage: 10 MG, TOTAL DAILY, ORAL
     Route: 048
     Dates: start: 20031101
  2. COUMADIN [Concomitant]
  3. DILTIAZEM HCL [Concomitant]
  4. ASPIRIN [Concomitant]
  5. HYDROCHLOROTHIAZIDE [Concomitant]
  6. VIAGRA [Concomitant]
  7. TERAZOSIN HCL [Concomitant]
  8. LASIX [Concomitant]
  9. POTASSIUM [Concomitant]

REACTIONS (4)
  - ERECTILE DYSFUNCTION [None]
  - FLUSHING [None]
  - OEDEMA PERIPHERAL [None]
  - WEIGHT DECREASED [None]
